FAERS Safety Report 7504079-X (Version None)
Quarter: 2011Q2

REPORT INFORMATION
  Report Type: 
  Country: None (occurrence: None)
  Receive Date: 20110525
  Receipt Date: 20110513
  Transmission Date: 20111010
  Serious: Yes (Life-Threatening)
  Sender: FDA-Public Use
  Company Number: GB-GILEAD-2011-0039492

PATIENT
  Sex: Male

DRUGS (10)
  1. CYTARABINE [Suspect]
     Indication: PRODUCT USED FOR UNKNOWN INDICATION
     Dates: start: 20110404, end: 20110412
  2. AMBISOME [Suspect]
     Indication: PRODUCT USED FOR UNKNOWN INDICATION
     Dates: start: 20110426, end: 20110503
  3. GENTAMICIN [Concomitant]
     Dates: start: 20110426, end: 20110502
  4. MYLOTARG [Suspect]
     Indication: PRODUCT USED FOR UNKNOWN INDICATION
     Dates: start: 20110404, end: 20110412
  5. ETOPOSIDE [Suspect]
     Indication: PRODUCT USED FOR UNKNOWN INDICATION
     Dates: start: 20110404, end: 20110412
  6. LEVOTHYROXINE SODIUM [Concomitant]
     Dates: start: 20110426, end: 20110502
  7. MULTI-VITAMINS [Concomitant]
     Dates: start: 20110427, end: 20110502
  8. ONDANSETRON [Concomitant]
     Dates: start: 20110428
  9. D3 [Concomitant]
     Dates: start: 20110427, end: 20110502
  10. DAUNORUBICIN HCL [Suspect]
     Indication: PRODUCT USED FOR UNKNOWN INDICATION
     Dates: start: 20110404, end: 20110412

REACTIONS (1)
  - HYPOKALAEMIA [None]
